FAERS Safety Report 7094371-8 (Version None)
Quarter: 2010Q4

REPORT INFORMATION
  Report Type: 
  Country: None (occurrence: None)
  Receive Date: 20101102
  Receipt Date: 20101022
  Transmission Date: 20110411
  Serious: Yes (Death, Other)
  Sender: FDA-Public Use
  Company Number: 2009JP000886

PATIENT
  Age: 43 Year
  Sex: Female

DRUGS (9)
  1. PROGRAF [Suspect]
     Indication: LUNG TRANSPLANT
  2. BASILIXIMAB (BASILIXIMAB) [Concomitant]
  3. MYCOPHENOLATE MOFETIL [Concomitant]
  4. METHYLPREDNISOLONE [Concomitant]
  5. PREDNISOLONE [Concomitant]
  6. URSODIOL [Concomitant]
  7. CYCLOSPORINE [Concomitant]
  8. AZATHIOPRINE [Concomitant]
  9. SIROLIMUS (RAPAMUNE) [Concomitant]

REACTIONS (22)
  - ALANINE AMINOTRANSFERASE INCREASED [None]
  - ASCITES [None]
  - ASPARTATE AMINOTRANSFERASE INCREASED [None]
  - BLOOD ALKALINE PHOSPHATASE INCREASED [None]
  - BLOOD FIBRINOGEN INCREASED [None]
  - BLOOD TRIGLYCERIDES INCREASED [None]
  - CHOLESTASIS [None]
  - GAMMA-GLUTAMYLTRANSFERASE INCREASED [None]
  - HAEMORRHAGIC DIATHESIS [None]
  - HEPATOTOXICITY [None]
  - HISTIOCYTOSIS HAEMATOPHAGIC [None]
  - HYPERBILIRUBINAEMIA [None]
  - INTERLEUKIN-2 RECEPTOR INCREASED [None]
  - LIVER DISORDER [None]
  - LUNG INFECTION PSEUDOMONAL [None]
  - MULTIPLE-DRUG RESISTANCE [None]
  - NO THERAPEUTIC RESPONSE [None]
  - PANCYTOPENIA [None]
  - PSEUDOMONAL SEPSIS [None]
  - PSEUDOMONAS BRONCHITIS [None]
  - SERUM FERRITIN INCREASED [None]
  - SPLENOMEGALY [None]
